FAERS Safety Report 19133681 (Version 3)
Quarter: 2021Q3

REPORT INFORMATION
  Report Type: Spontaneous
  Country: US (occurrence: US)
  Receive Date: 20210414
  Receipt Date: 20210707
  Transmission Date: 20211014
  Serious: No
  Sender: FDA-Public Use
  Company Number: US-ALXN-A202104445

PATIENT
  Sex: Female

DRUGS (1)
  1. STRENSIQ [Suspect]
     Active Substance: ASFOTASE ALFA
     Indication: PRODUCT USED FOR UNKNOWN INDICATION
     Dosage: UNK
     Route: 065
     Dates: start: 2016

REACTIONS (7)
  - Injection site pain [Unknown]
  - Injection site hypoaesthesia [Unknown]
  - Emotional distress [Unknown]
  - Anxiety [Unknown]
  - Injection site indentation [Unknown]
  - Skin atrophy [Unknown]
  - Injection site atrophy [Unknown]
